FAERS Safety Report 8075834-5 (Version None)
Quarter: 2012Q1

REPORT INFORMATION
  Report Type: 
  Country: None (occurrence: None)
  Receive Date: 20120127
  Receipt Date: 20120123
  Transmission Date: 20120608
  Serious: No
  Sender: FDA-Public Use
  Company Number: US-PFIZER INC-2012018211

PATIENT
  Sex: Female
  Weight: 99.773 kg

DRUGS (7)
  1. SYNTHROID [Concomitant]
     Dosage: 25 UG, DAILY
  2. SINGULAIR [Concomitant]
     Dosage: 10 MG, DAILY
  3. ALBUTEROL SULFATE [Concomitant]
     Indication: ASTHMA
     Dosage: UNK, AS NEEDED
  4. PROTONIX [Concomitant]
     Dosage: 40 MG, 2X/DAY
  5. EFFEXOR XR [Suspect]
     Indication: DEPRESSION
     Dosage: 150 MG, DAILY
     Dates: start: 20061201
  6. EFFEXOR XR [Suspect]
     Dosage: 75 MG, DAILY
  7. HYDROCHLOROTHIAZIDE [Concomitant]
     Dosage: 25 MG, DAILY

REACTIONS (1)
  - HEADACHE [None]
